FAERS Safety Report 19838065 (Version 1)
Quarter: 2021Q3

REPORT INFORMATION
  Report Type: Spontaneous
  Country: DE (occurrence: DE)
  Receive Date: 20210916
  Receipt Date: 20210916
  Transmission Date: 20211014
  Serious: Yes (Hospitalization, Other)
  Sender: FDA-Public Use
  Company Number: DE-TEVA-2021-DE-1951521

PATIENT
  Age: 55 Year
  Sex: Female
  Weight: 175 kg

DRUGS (4)
  1. DULOXETIN [Suspect]
     Active Substance: DULOXETINE
     Dosage: 60 MILLIGRAM DAILY; 1?0?0?0
     Route: 048
  2. BISOPROLOL [Concomitant]
     Active Substance: BISOPROLOL
     Dosage: 2.5 MILLIGRAM DAILY; 1?0?0?0
     Route: 048
  3. RIVAROXABAN [Suspect]
     Active Substance: RIVAROXABAN
     Dosage: 20 MILLIGRAM DAILY; 0?0?1?0
     Route: 048
  4. EISEN(II)?KOMPLEX [Concomitant]
     Dosage: 50 MILLIGRAM DAILY; 1?0?0?0
     Route: 048

REACTIONS (1)
  - Heavy menstrual bleeding [Unknown]
